FAERS Safety Report 9654357 (Version 1)
Quarter: 2013Q4

REPORT INFORMATION
  Report Type: Spontaneous
  Country: US (occurrence: None)
  Receive Date: 20131017
  Receipt Date: 20131017
  Transmission Date: 20140711
  Serious: Yes (Other)
  Sender: FDA-Public Use
  Company Number: 2013038417

PATIENT
  Age: 40 Year
  Sex: Male

DRUGS (4)
  1. IV IMMUNOGLOBULIN (IMMUNE GLOBULIN INTRAVENOUS [Suspect]
     Indication: CHRONIC INFLAMMATORY DEMYELINATING POLYRADICULONEUROPATHY
  2. PREDNISONE [Suspect]
  3. MYCOPHENOLATE MOFETIL [Suspect]
  4. METHYLPREDNISOLONE [Suspect]

REACTIONS (8)
  - Nervous system disorder [None]
  - Wheelchair user [None]
  - Osteomyelitis [None]
  - Asthenia [None]
  - Sensory loss [None]
  - Clubbing [None]
  - Papilloedema [None]
  - Erectile dysfunction [None]
